FAERS Safety Report 7440801-9 (Version None)
Quarter: 2011Q2

REPORT INFORMATION
  Report Type: 
  Country: None (occurrence: None)
  Receive Date: 20110427
  Receipt Date: 20110418
  Transmission Date: 20111010
  Serious: Yes (Hospitalization)
  Sender: FDA-Public Use
  Company Number: NL-MEDIMMUNE-MEDI-0013122

PATIENT
  Sex: Female

DRUGS (1)
  1. SYNAGIS [Suspect]
     Route: 030
     Dates: start: 20101227, end: 20110321

REACTIONS (3)
  - VOMITING [None]
  - PYREXIA [None]
  - WEIGHT DECREASED [None]
